FAERS Safety Report 5601629-5 (Version None)
Quarter: 2008Q1

REPORT INFORMATION
  Report Type: 
  Country: None (occurrence: None)
  Receive Date: 20080124
  Receipt Date: 20080115
  Transmission Date: 20080703
  Serious: Yes (Other)
  Sender: FDA-Public Use
  Company Number: US-ASTRAZENECA-2006UW07991

PATIENT
  Sex: Female
  Weight: 68.2 kg

DRUGS (9)
  1. SEROQUEL [Suspect]
     Indication: BIPOLAR DISORDER
     Dosage: 100-200 MG
     Route: 048
     Dates: start: 20051201, end: 20060301
  2. SEROQUEL [Suspect]
     Indication: SCHIZOPHRENIA
     Dosage: 100-200 MG
     Route: 048
     Dates: start: 20051201, end: 20060301
  3. SEROQUEL [Suspect]
     Indication: DEPRESSION
     Dosage: 100-200 MG
     Route: 048
     Dates: start: 20051201, end: 20060301
  4. GEODON [Concomitant]
     Dates: start: 20050101
  5. TRAZODONE HCL [Concomitant]
     Dates: start: 20040101, end: 20050101
  6. VALIUM [Concomitant]
     Dates: start: 20040101
  7. NEXIUM [Concomitant]
     Route: 048
     Dates: start: 20060321
  8. GABAPENTIN [Concomitant]
     Dates: start: 20060321
  9. OXYCODONE AND ACETAMINOPHEN [Concomitant]
     Dosage: 5/325 TABLET
     Dates: start: 20060221

REACTIONS (5)
  - ABDOMINAL PAIN UPPER [None]
  - DIABETES MELLITUS [None]
  - GASTROOESOPHAGEAL REFLUX DISEASE [None]
  - GLYCOSURIA [None]
  - PANCREATITIS [None]
